FAERS Safety Report 8480866-9 (Version None)
Quarter: 2012Q3

REPORT INFORMATION
  Report Type: 
  Country: None (occurrence: None)
  Receive Date: 20120702
  Receipt Date: 20120623
  Transmission Date: 20120928
  Serious: Yes (Other)
  Sender: FDA-Public Use
  Company Number: US-BAYER-2011-120245

PATIENT
  Sex: Female
  Weight: 82 kg

DRUGS (4)
  1. VICODIN [Concomitant]
     Indication: PAIN
  2. YASMIN [Suspect]
     Indication: CONTRACEPTION
     Dosage: UNK
     Dates: start: 20070426, end: 20091001
  3. YAZ [Suspect]
     Indication: CONTRACEPTION
     Dosage: UNK
     Dates: start: 20070426, end: 20091001
  4. ACETAMINOPHEN [Concomitant]

REACTIONS (5)
  - CHOLELITHIASIS [None]
  - PAIN [None]
  - ANXIETY [None]
  - CHOLECYSTITIS CHRONIC [None]
  - EMOTIONAL DISORDER [None]
